FAERS Safety Report 24734136 (Version 1)
Quarter: 2024Q4

REPORT INFORMATION
  Report Type: Spontaneous
  Country: US (occurrence: US)
  Receive Date: 20241214
  Receipt Date: 20241214
  Transmission Date: 20250114
  Serious: No
  Sender: ALKEM
  Company Number: US-ALKEM LABORATORIES LIMITED-US-ALKEM-2024-19769

PATIENT

DRUGS (6)
  1. MYCOPHENOLATE MOFETIL [Suspect]
     Active Substance: MYCOPHENOLATE MOFETIL
     Indication: Immunosuppression
     Dosage: 1 GRAM, BID (UP TO 12H PREOPERATIVELY OR BEFORE REVASCULARIZATION)
     Route: 065
  2. MYCOPHENOLATE MOFETIL [Suspect]
     Active Substance: MYCOPHENOLATE MOFETIL
     Indication: Prophylaxis
  3. BASILIXIMAB [Concomitant]
     Active Substance: BASILIXIMAB
     Indication: Product used for unknown indication
     Dosage: 20-MG BOLUS INFUSION THE FIRST DOSE WAS GIVEN INTRAOPERATIVELY BEFORE REVASCULARIZATION
     Route: 040
  4. BASILIXIMAB [Concomitant]
     Active Substance: BASILIXIMAB
     Dosage: 20-MG BOLUS INFUSION, SECOND WAS GIVEN WITHIN 3 TO 5 D POSTTRANSPLAN
     Route: 040
  5. TACROLIMUS [Concomitant]
     Active Substance: TACROLIMUS
     Indication: Immunosuppression
     Dosage: 0.05 MILLIGRAM/KILOGRAM, BID (POST TRANSPLANT) (IMMEDIATE-RELEASE)
     Route: 048
  6. TACROLIMUS [Concomitant]
     Active Substance: TACROLIMUS
     Indication: Prophylaxis

REACTIONS (2)
  - Disease recurrence [Unknown]
  - Focal segmental glomerulosclerosis [Unknown]
